FAERS Safety Report 5371678-3 (Version None)
Quarter: 2007Q2

REPORT INFORMATION
  Report Type: 
  Country: None (occurrence: None)
  Receive Date: 20070627
  Receipt Date: 20070615
  Transmission Date: 20071010
  Serious: Yes (Other)
  Sender: FDA-Public Use
  Company Number: HQWYE656018JUN07

PATIENT
  Sex: Female
  Weight: 62.65 kg

DRUGS (10)
  1. NEUMEGA [Suspect]
     Indication: PLATELET COUNT DECREASED
     Dosage: UNKNOWN
     Route: 065
     Dates: start: 20070525, end: 20070531
  2. LISINOPRIL [Concomitant]
  3. COENZYME Q10 [Concomitant]
     Dosage: UNKNOWN
  4. CALCIUM CHLORIDE [Concomitant]
     Dosage: UNKNOWN
  5. FUROSEMIDE [Concomitant]
     Dosage: UNKNOWN
  6. VITAMINS NOS [Concomitant]
     Dosage: UNKNOWN
  7. PAROXETINE HCL [Concomitant]
     Dosage: UNKNOWN
  8. NEULASTA [Concomitant]
     Dosage: UNKNOWN
     Dates: start: 20070101
  9. COUMADIN [Concomitant]
     Indication: CARDIAC ABLATION
     Dosage: UNKNOWN
  10. POTASSIUM ACETATE [Concomitant]
     Dosage: UNKNOWN

REACTIONS (8)
  - ABDOMINAL DISTENSION [None]
  - DYSPNOEA [None]
  - FLUID RETENTION [None]
  - INJECTION SITE RASH [None]
  - INTERNATIONAL NORMALISED RATIO INCREASED [None]
  - MUSCLE FATIGUE [None]
  - OEDEMA [None]
  - OEDEMA PERIPHERAL [None]
